FAERS Safety Report 5268278-2 (Version None)
Quarter: 2007Q1

REPORT INFORMATION
  Report Type: 
  Country: None (occurrence: None)
  Receive Date: 20070319
  Receipt Date: 20070307
  Transmission Date: 20070707
  Serious: Yes (Hospitalization)
  Sender: FDA-Public Use
  Company Number: NL-AMGEN-UK155917

PATIENT
  Sex: Female
  Weight: 83 kg

DRUGS (6)
  1. PALIFERMIN [Suspect]
     Indication: MUCOSAL INFLAMMATION
     Route: 042
     Dates: start: 20051010, end: 20051012
  2. ARA-C [Suspect]
     Route: 042
     Dates: start: 20051014, end: 20051017
  3. CARMUSTINE [Concomitant]
     Route: 042
     Dates: start: 20051013, end: 20051013
  4. ETOPOSIDE [Concomitant]
     Route: 042
     Dates: start: 20051014, end: 20051017
  5. METHOTREXATE [Concomitant]
     Route: 065
  6. MELPHALAN [Concomitant]
     Route: 042
     Dates: start: 20051018, end: 20051018

REACTIONS (6)
  - BLISTER [None]
  - EPIDERMOLYSIS [None]
  - EXFOLIATIVE RASH [None]
  - OEDEMA [None]
  - PALMAR-PLANTAR ERYTHRODYSAESTHESIA SYNDROME [None]
  - PRURITUS [None]
